FAERS Safety Report 9834311 (Version 3)
Quarter: 2014Q2

REPORT INFORMATION
  Report Type: Spontaneous
  Country: JP (occurrence: JP)
  Receive Date: 20140122
  Receipt Date: 20140416
  Transmission Date: 20141212
  Serious: Yes (Other)
  Sender: FDA-Public Use
  Company Number: JP-JNJFOC-20140110834

PATIENT
  Age: 9 Decade
  Sex: Male

DRUGS (6)
  1. TRAMCET [Suspect]
     Indication: PAIN
     Dosage: 1 PER 1 DAY
     Route: 048
  2. TRAMCET [Suspect]
     Indication: PAIN
     Dosage: 2 PER 1 DAY
     Route: 048
     Dates: end: 20131103
  3. PROCYLIN [Suspect]
     Indication: PERIPHERAL ARTERIAL OCCLUSIVE DISEASE
     Dosage: 1 PER 1 DAY
     Route: 048
     Dates: end: 20131103
  4. ANPLAG [Suspect]
     Indication: PERIPHERAL ARTERIAL OCCLUSIVE DISEASE
     Dosage: 1 PER 1 DAY
     Route: 048
     Dates: end: 20131103
  5. BAYASPIRIN [Suspect]
     Indication: PERIPHERAL ARTERIAL OCCLUSIVE DISEASE
     Dosage: 1 PER 1 DAY
     Route: 048
     Dates: end: 20131103
  6. WARFARIN [Suspect]
     Indication: PERIPHERAL ARTERIAL OCCLUSIVE DISEASE
     Dosage: 1 PER 1 DAY
     Route: 048
     Dates: end: 20131103

REACTIONS (1)
  - Upper gastrointestinal haemorrhage [Recovered/Resolved]
